FAERS Safety Report 8159140-6 (Version None)
Quarter: 2012Q1

REPORT INFORMATION
  Report Type: 
  Country: None (occurrence: None)
  Receive Date: 20120216
  Receipt Date: 20120104
  Transmission Date: 20120608
  Serious: Yes (Other)
  Sender: FDA-Public Use
  Company Number: DSA_48234_2011

PATIENT
  Sex: Female

DRUGS (15)
  1. FUROSEMIDE [Concomitant]
  2. METOPROLOL TARTRATE [Concomitant]
  3. PRINIVIL [Concomitant]
  4. CARTIA XT [Concomitant]
  5. CYANOCOBALAMIN [Concomitant]
  6. PHARMACIST FAVORITE MULTI-VIT TAB [Concomitant]
  7. COZAAR [Concomitant]
  8. PAXIL [Concomitant]
  9. WARFARIN SODIUM [Concomitant]
  10. ESTRADIOL [Concomitant]
  11. OMEPRAZOLE [Concomitant]
  12. MOTILIUM /00498201/ [Concomitant]
  13. XENAZINE [Suspect]
     Indication: HUNTINGTON'S DISEASE
     Dosage: (12.5 MG QD ORAL)
     Route: 048
     Dates: start: 20110511, end: 20111031
  14. ERGOCALCIFEROL [Concomitant]
  15. GLUCOPHAGE [Concomitant]

REACTIONS (6)
  - DYSPHAGIA [None]
  - BRADYKINESIA [None]
  - MUSCLE RIGIDITY [None]
  - GAIT DISTURBANCE [None]
  - TARDIVE DYSKINESIA [None]
  - NORMAL PRESSURE HYDROCEPHALUS [None]
